FAERS Safety Report 17045444 (Version 5)
Quarter: 2020Q1

REPORT INFORMATION
  Report Type: Spontaneous
  Country: JP (occurrence: JP)
  Receive Date: 20191118
  Receipt Date: 20200124
  Transmission Date: 20200409
  Serious: Yes (Hospitalization, Other)
  Sender: FDA-Public Use
  Company Number: JP-CELGENEUS-JPN-20191105838

PATIENT
  Age: 54 Year
  Sex: Male

DRUGS (8)
  1. PALONOSETRON HYDROCHLORIDE. [Suspect]
     Active Substance: PALONOSETRON HYDROCHLORIDE
     Indication: PRODUCT USED FOR UNKNOWN INDICATION
     Dosage: .75 MILLIGRAM
     Route: 041
     Dates: start: 201704, end: 201808
  2. GEMCITABINE. [Suspect]
     Active Substance: GEMCITABINE
     Indication: PANCREATIC CARCINOMA METASTATIC
     Route: 041
     Dates: start: 201702, end: 201708
  3. GEMCITABINE. [Suspect]
     Active Substance: GEMCITABINE
     Dosage: 1744 MILLIGRAM
     Route: 041
     Dates: start: 201704, end: 201808
  4. APREPITANT. [Concomitant]
     Active Substance: APREPITANT
     Indication: PRODUCT USED FOR UNKNOWN INDICATION
     Dosage: 205 MILLIGRAM
     Route: 048
     Dates: start: 201704, end: 201811
  5. VONOPRAZAN FUMARATE [Concomitant]
     Active Substance: VONOPRAZAN FUMURATE
     Indication: PRODUCT USED FOR UNKNOWN INDICATION
     Dosage: 10 MILLIGRAM
     Route: 048
     Dates: start: 201705
  6. METOCLOPRAMIDE. [Concomitant]
     Active Substance: METOCLOPRAMIDE
     Indication: PRODUCT USED FOR UNKNOWN INDICATION
     Dosage: 10 MILLIGRAM
     Route: 041
     Dates: start: 201704, end: 201808
  7. ABRAXANE [Suspect]
     Active Substance: PACLITAXEL
     Indication: PANCREATIC CARCINOMA METASTATIC
     Route: 041
     Dates: start: 201702, end: 201708
  8. ABRAXANE [Suspect]
     Active Substance: PACLITAXEL
     Dosage: 218 MILLIGRAM
     Route: 041
     Dates: start: 201704, end: 201808

REACTIONS (5)
  - Scleroderma [Recovering/Resolving]
  - Hyperkeratosis [Unknown]
  - Sclerema [Unknown]
  - Oedema peripheral [Unknown]
  - Acanthosis nigricans [Recovering/Resolving]

NARRATIVE: CASE EVENT DATE: 201702
